FAERS Safety Report 16859487 (Version 1)
Quarter: 2019Q3

REPORT INFORMATION
  Report Type: Spontaneous
  Country: US (occurrence: US)
  Receive Date: 20190805
  Receipt Date: 20190805
  Transmission Date: 20191005
  Serious: No
  Sender: FDA-Public Use
  Company Number: None

PATIENT

DRUGS (1)
  1. MAVYRET [Suspect]
     Active Substance: GLECAPREVIR\PIBRENTASVIR

REACTIONS (6)
  - Wound [None]
  - Skin ulcer [None]
  - Acne [None]
  - Condition aggravated [None]
  - Rash [None]
  - Infection [None]

NARRATIVE: CASE EVENT DATE: 20190805
